FAERS Safety Report 4751549-3 (Version None)
Quarter: 2005Q3

REPORT INFORMATION
  Report Type: 
  Country: None (occurrence: None)
  Receive Date: 20050824
  Receipt Date: 20050708
  Transmission Date: 20060218
  Serious: Yes (Death)
  Sender: FDA-Public Use
  Company Number: US-GLAXOSMITHKLINE-A0565550A

PATIENT
  Age: 20 Year
  Sex: Female
  Weight: 61.8 kg

DRUGS (1)
  1. WELLBUTRIN [Suspect]
     Indication: DRUG USE FOR UNKNOWN INDICATION
     Route: 048
     Dates: start: 20030601

REACTIONS (6)
  - COMPLETED SUICIDE [None]
  - DRUG TOXICITY [None]
  - HEPATIC CONGESTION [None]
  - INTENTIONAL MISUSE [None]
  - INTENTIONAL SELF-INJURY [None]
  - PULMONARY OEDEMA [None]
